FAERS Safety Report 19566015 (Version 2)
Quarter: 2022Q1

REPORT INFORMATION
  Report Type: Other
  Country: US (occurrence: None)
  Receive Date: 20210714
  Receipt Date: 20220120
  Transmission Date: 20220424
  Serious: Yes (Other)
  Sender: FDA-Public Use
  Company Number: US-ROCHE-2865559

PATIENT

DRUGS (3)
  1. OBINUTUZUMAB [Suspect]
     Active Substance: OBINUTUZUMAB
     Indication: Chronic lymphocytic leukaemia
     Route: 042
  2. ACALABRUTINIB [Suspect]
     Active Substance: ACALABRUTINIB
     Indication: Chronic lymphocytic leukaemia
     Route: 065
  3. CHLORAMBUCIL [Suspect]
     Active Substance: CHLORAMBUCIL
     Indication: Chronic lymphocytic leukaemia
     Route: 065

REACTIONS (25)
  - Atrial fibrillation [Unknown]
  - Diarrhoea [Unknown]
  - Headache [Unknown]
  - Neutropenia [Unknown]
  - Infusion related reaction [Unknown]
  - Haemorrhage [Unknown]
  - Hypertension [Unknown]
  - Fatigue [Unknown]
  - Arthralgia [Unknown]
  - Cough [Unknown]
  - Upper respiratory tract infection [Unknown]
  - Infection [Unknown]
  - Second primary malignancy [Unknown]
  - Acute kidney injury [Unknown]
  - Febrile neutropenia [Unknown]
  - Gastrointestinal haemorrhage [Unknown]
  - Hepatitis B reactivation [Unknown]
  - Myocardial infarction [Unknown]
  - Pericardial effusion [Unknown]
  - Progressive multifocal leukoencephalopathy [Unknown]
  - Rectal adenocarcinoma [Unknown]
  - Sepsis [Unknown]
  - Squamous cell carcinoma [Unknown]
  - Thyroid cancer [Unknown]
  - Transient ischaemic attack [Unknown]
